FAERS Safety Report 21685246 (Version 2)
Quarter: 2022Q4

REPORT INFORMATION
  Report Type: Spontaneous
  Country: US (occurrence: US)
  Receive Date: 20221206
  Receipt Date: 20221213
  Transmission Date: 20230113
  Serious: Yes (Hospitalization, Other)
  Sender: FDA-Public Use
  Company Number: US-CIPLA (EU) LIMITED-2022US07011

PATIENT
  Age: 40 Year
  Sex: Male

DRUGS (7)
  1. TENOFOVIR [Interacting]
     Active Substance: TENOFOVIR
     Indication: Prophylaxis
     Dosage: UNK, 300 MILLIGRAM, DAILY, INCREASED TDF EXPOSURE
     Route: 065
  2. SOFOSBUVIR AND VELPATASVIR [Interacting]
     Active Substance: SOFOSBUVIR\VELPATASVIR
     Indication: Hepatitis C
     Dosage: UNK
     Route: 065
  3. OMEPRAZOLE [Concomitant]
     Active Substance: OMEPRAZOLE
     Indication: Product used for unknown indication
     Dosage: UNK
     Route: 065
  4. EMTRICITABINE [Concomitant]
     Active Substance: EMTRICITABINE
     Indication: Prophylaxis
     Dosage: UNK
     Route: 065
  5. LACOSAMIDE [Concomitant]
     Active Substance: LACOSAMIDE
     Indication: Epilepsy
     Dosage: UNK
     Route: 065
  6. BRIVARACETAM [Concomitant]
     Active Substance: BRIVARACETAM
     Indication: Epilepsy
     Dosage: UNK
     Route: 065
  7. HYDROXYCHLOROQUINE [Concomitant]
     Active Substance: HYDROXYCHLOROQUINE
     Indication: Cutaneous sarcoidosis
     Dosage: UNK
     Route: 065

REACTIONS (4)
  - Arteriosclerosis [Unknown]
  - Renal impairment [Recovering/Resolving]
  - Drug level increased [Unknown]
  - Drug interaction [Unknown]
